FAERS Safety Report 9369397 (Version 3)
Quarter: 2013Q3

REPORT INFORMATION
  Report Type: Spontaneous
  Country: US (occurrence: US)
  Receive Date: 20130626
  Receipt Date: 20130710
  Transmission Date: 20140515
  Serious: Yes (Other)
  Sender: FDA-Public Use
  Company Number: US-UCBSA-090117

PATIENT
  Age: 68 Year
  Sex: Female

DRUGS (11)
  1. CIMZIA [Suspect]
     Indication: RHEUMATOID ARTHRITIS
     Route: 058
     Dates: start: 20130206, end: 201303
  2. FUROSEMIDE [Concomitant]
     Indication: CARDIAC DISORDER
     Dosage: DAILY DOSE: 20 MG
  3. METOPROLOL [Concomitant]
     Indication: CARDIAC DISORDER
  4. ARAVA [Concomitant]
     Indication: RHEUMATOID ARTHRITIS
     Dosage: DAILY DOSE : 20 MG
  5. PROTONIX [Concomitant]
     Indication: GASTROOESOPHAGEAL REFLUX DISEASE
     Dosage: DAILY DOSE: 80 MG
  6. SULAR [Concomitant]
     Indication: CARDIAC DISORDER
     Dosage: DAILY DOSE: 8.5 MG
  7. DIOVAN [Concomitant]
     Dosage: 320 MG DAILY
  8. K-CLOR [Concomitant]
     Dosage: 40MEQ DAILY
  9. TOVIAZ [Concomitant]
     Indication: MICTURITION URGENCY
     Dosage: 8MG DAILY
  10. CLOPIDOGREL [Concomitant]
     Dosage: 75MG DAILY.
  11. ASA [Concomitant]
     Dosage: 81MG DAILY

REACTIONS (5)
  - Rash [Unknown]
  - Precancerous cells present [Unknown]
  - Pruritus [Unknown]
  - Fall [Unknown]
  - Skeletal injury [Unknown]
